FAERS Safety Report 17673544 (Version 7)
Quarter: 2022Q1

REPORT INFORMATION
  Report Type: Report from Study
  Country: BE (occurrence: BE)
  Receive Date: 20200415
  Receipt Date: 20220222
  Transmission Date: 20220423
  Serious: Yes (Life-Threatening, Hospitalization)
  Sender: FDA-Public Use
  Company Number: BE-ABBVIE-20P-013-3357433-00

PATIENT
  Age: 71 Year
  Sex: Female

DRUGS (28)
  1. VENETOCLAX [Suspect]
     Active Substance: VENETOCLAX
     Indication: Acute myeloid leukaemia
     Route: 048
     Dates: start: 20180410, end: 20180410
  2. VENETOCLAX [Suspect]
     Active Substance: VENETOCLAX
     Route: 048
     Dates: start: 20180411, end: 20180411
  3. VENETOCLAX [Suspect]
     Active Substance: VENETOCLAX
     Route: 048
     Dates: start: 20180412, end: 20200329
  4. AZACITIDINE [Suspect]
     Active Substance: AZACITIDINE
     Indication: Acute myeloid leukaemia
     Dosage: DAYS 1-7 OF EACH 28 DAY CYCLE
     Route: 058
     Dates: start: 20180410, end: 20180923
  5. AZACITIDINE [Suspect]
     Active Substance: AZACITIDINE
     Dosage: DAYS 1-7 OF EACH 28 DAY CYCLE
     Route: 058
     Dates: start: 20181105, end: 20200315
  6. ALLOPURINOL [Concomitant]
     Active Substance: ALLOPURINOL
     Indication: Blood uric acid increased
     Route: 048
     Dates: start: 20180406, end: 20180508
  7. ALLOPURINOL [Concomitant]
     Active Substance: ALLOPURINOL
     Indication: Prophylaxis
     Route: 048
     Dates: start: 20180718, end: 20180807
  8. ALLOPURINOL [Concomitant]
     Active Substance: ALLOPURINOL
     Route: 048
     Dates: start: 20180808, end: 20181019
  9. ALLOPURINOL [Concomitant]
     Active Substance: ALLOPURINOL
     Route: 048
     Dates: start: 20190924, end: 20200408
  10. ALLOPURINOL [Concomitant]
     Active Substance: ALLOPURINOL
     Route: 048
     Dates: start: 20180509, end: 20180618
  11. NORMAL SALINE SOLUTION (0.9% SODIUM CHLORIDE) [Concomitant]
     Indication: Prophylaxis
     Route: 042
     Dates: start: 20180410, end: 20180420
  12. FOLIC ACID [Concomitant]
     Active Substance: FOLIC ACID
     Indication: Folate deficiency
     Route: 048
     Dates: start: 201803
  13. MOVICOL [Concomitant]
     Active Substance: POLYETHYLENE GLYCOL 3350\POTASSIUM CHLORIDE\SODIUM BICARBONATE\SODIUM CHLORIDE
     Indication: Constipation
     Route: 048
     Dates: start: 20180327
  14. IMODIUM [Concomitant]
     Active Substance: LOPERAMIDE HYDROCHLORIDE
     Indication: Diarrhoea
     Route: 048
     Dates: start: 20180330
  15. ZOFRAN [Concomitant]
     Active Substance: ONDANSETRON HYDROCHLORIDE
     Indication: Prophylaxis of nausea and vomiting
     Route: 048
     Dates: start: 20180410
  16. TRADONAL ODIS [Concomitant]
     Indication: Skin ulcer
     Route: 048
     Dates: start: 20180423
  17. ACYCLOVIR [Concomitant]
     Active Substance: ACYCLOVIR
     Indication: Antiviral prophylaxis
     Route: 048
     Dates: start: 20180413, end: 20180504
  18. ACYCLOVIR [Concomitant]
     Active Substance: ACYCLOVIR
     Route: 048
     Dates: start: 20180505
  19. BEFACT FORTE [Concomitant]
     Indication: Vitamin supplementation
     Dosage: COMPRIME
     Route: 048
     Dates: start: 20180611
  20. CALCI-BONE D3 [Concomitant]
     Indication: Hypocalcaemia
     Dosage: 1000/880 MG
     Route: 048
     Dates: start: 20181011
  21. AMLODIPINE [Concomitant]
     Active Substance: AMLODIPINE BESYLATE
     Indication: Hypertension
     Route: 048
     Dates: start: 20180403, end: 20181010
  22. AMLODIPINE [Concomitant]
     Active Substance: AMLODIPINE BESYLATE
     Route: 048
     Dates: start: 20181014
  23. LISINOPRIL [Concomitant]
     Active Substance: LISINOPRIL
     Indication: Hypertension
     Route: 048
     Dates: start: 20181016, end: 20200407
  24. DECUSORB PASTE [Concomitant]
     Indication: Skin ulcer
     Dosage: 1 APPLICATION
     Route: 061
     Dates: start: 20190502
  25. DIPROSONE CREAM [Concomitant]
     Indication: Skin ulcer
     Dosage: 2 APPLICATION
     Route: 061
     Dates: start: 20190110
  26. ULTRA-MAGNESIUM [Concomitant]
     Indication: Muscle spasms
     Route: 048
     Dates: start: 20180910, end: 20210208
  27. POTASSIUM PERMANGANATE [Concomitant]
     Active Substance: POTASSIUM PERMANGANATE
     Indication: Skin ulcer
     Dosage: 1 APPLICATION
     Route: 061
     Dates: start: 20190802, end: 20200407
  28. ALUMINUM MAGNESIUM HYDROXIDE [Concomitant]
     Indication: Nausea
     Dosage: 200/400 MG
     Route: 048
     Dates: start: 20200210

REACTIONS (1)
  - COVID-19 [Recovered/Resolved]

NARRATIVE: CASE EVENT DATE: 20200408
